FAERS Safety Report 8316282-X (Version None)
Quarter: 2012Q2

REPORT INFORMATION
  Report Type: 
  Country: None (occurrence: None)
  Receive Date: 20120427
  Receipt Date: 20120420
  Transmission Date: 20120825
  Serious: No
  Sender: FDA-Public Use
  Company Number: US-PFIZER INC-2012099987

PATIENT
  Sex: Male

DRUGS (1)
  1. SUTENT [Suspect]
     Indication: RENAL CELL CARCINOMA
     Dosage: 50 MG, 1X/DAY (CYCLE 4 WEEKS ON AND 2 OFF)
     Dates: start: 20120127

REACTIONS (6)
  - ABDOMINAL PAIN [None]
  - DYSGEUSIA [None]
  - GASTROINTESTINAL INFECTION [None]
  - WEIGHT INCREASED [None]
  - ENERGY INCREASED [None]
  - HAIR COLOUR CHANGES [None]
